FAERS Safety Report 19067710 (Version 1)
Quarter: 2021Q1

REPORT INFORMATION
  Report Type: Other
  Country: US (occurrence: US)
  Receive Date: 20210329
  Receipt Date: 20210329
  Transmission Date: 20210420
  Serious: Yes (Other)
  Sender: FDA-Public Use
  Company Number: US-ROCHE-2781800

PATIENT
  Sex: Female

DRUGS (2)
  1. XELODA [Suspect]
     Active Substance: CAPECITABINE
     Route: 048
  2. XELODA [Suspect]
     Active Substance: CAPECITABINE
     Indication: MALIGNANT LYMPHOID NEOPLASM
     Dosage: TAKE TWO TABLETS OF 500 MG AND 2 TABLETS OF 150 MG FOR DOSE OF 1300 MG IN MORNING TWICE DAILY FOR TW
     Route: 048

REACTIONS (2)
  - Pulmonary thrombosis [Unknown]
  - Off label use [Unknown]
